FAERS Safety Report 8029889-4 (Version None)
Quarter: 2011Q4

REPORT INFORMATION
  Report Type: 
  Country: None (occurrence: None)
  Receive Date: 20111130
  Receipt Date: 20110415
  Transmission Date: 20120403
  Serious: Yes (Other)
  Sender: FDA-Public Use
  Company Number: US201104004997

PATIENT
  Age: 59 Year
  Sex: Female

DRUGS (6)
  1. ACE INHIBITORS [Concomitant]
  2. METFORMIN HCL [Concomitant]
  3. BYETTA [Suspect]
     Indication: TYPE 2 DIABETES MELLITUS
     Dosage: 5 UG, BID, SUBCUTANEOUS; 10 UG, BID, SUBCUTANEOUS
     Route: 058
     Dates: end: 20101101
  4. BYETTA [Suspect]
     Indication: TYPE 2 DIABETES MELLITUS
     Dosage: 5 UG, BID, SUBCUTANEOUS; 10 UG, BID, SUBCUTANEOUS
     Route: 058
  5. AMARYL [Concomitant]
  6. LIPID MODIFYING AGENTS [Concomitant]

REACTIONS (3)
  - GASTRITIS [None]
  - WEIGHT DECREASED [None]
  - PANCREATITIS [None]
